FAERS Safety Report 12648218 (Version 1)
Quarter: 2016Q3

REPORT INFORMATION
  Report Type: Spontaneous
  Country: CN (occurrence: CN)
  Receive Date: 20160812
  Receipt Date: 20160812
  Transmission Date: 20161109
  Serious: Yes (Hospitalization)
  Sender: FDA-Public Use
  Company Number: CN-BAYER-2016-152986

PATIENT
  Age: 68 Year
  Sex: Male

DRUGS (3)
  1. CLOPIDOGREL [Interacting]
     Active Substance: CLOPIDOGREL BISULFATE
  2. HEPARIN [Interacting]
     Active Substance: HEPARIN SODIUM
  3. ACETYLSALICYLIC ACID({=100 MG) [Suspect]
     Active Substance: ASPIRIN

REACTIONS (4)
  - Labelled drug-drug interaction medication error [None]
  - Cerebral infarction [None]
  - Drug administration error [None]
  - Cerebral haemorrhage [None]
